FAERS Safety Report 13329794 (Version 1)
Quarter: 2017Q1

REPORT INFORMATION
  Report Type: Spontaneous
  Country: US (occurrence: US)
  Receive Date: 20170313
  Receipt Date: 20170313
  Transmission Date: 20170428
  Serious: Yes (Other)
  Sender: FDA-Public Use
  Company Number: US-ARALEZ PHARMACEUTICALS RD INC.-ARA-TP-US-2017-93

PATIENT
  Age: 70 Year
  Sex: Male
  Weight: 77.18 kg

DRUGS (5)
  1. ATORVASTATIN [Concomitant]
     Active Substance: ATORVASTATIN
     Indication: BLOOD PRESSURE MEASUREMENT
     Route: 065
  2. METOPROLOL SUCCINATE. [Suspect]
     Active Substance: METOPROLOL SUCCINATE
     Indication: HYPERTENSION
     Route: 065
  3. BRILINTA [Suspect]
     Active Substance: TICAGRELOR
     Indication: STENT PLACEMENT
     Route: 048
     Dates: start: 201607
  4. ASPIRIN. [Concomitant]
     Active Substance: ASPIRIN
     Indication: CARDIAC DISORDER
     Route: 048
  5. ABSORBIDE [Concomitant]
     Indication: PRODUCT USED FOR UNKNOWN INDICATION
     Route: 065
     Dates: start: 201606

REACTIONS (9)
  - Smoking cessation therapy [Unknown]
  - Weight increased [Recovering/Resolving]
  - Energy increased [Unknown]
  - Stent placement [Unknown]
  - Cardiac operation [Unknown]
  - Vascular graft [Unknown]
  - Cardiac pacemaker insertion [Unknown]
  - Stent placement [Unknown]
  - Increased appetite [Recovered/Resolved]

NARRATIVE: CASE EVENT DATE: 201606
